FAERS Safety Report 8281029 (Version 4)
Quarter: 2012Q4

REPORT INFORMATION
  Report Type: Report from Study
  Country: DE (occurrence: DE)
  Receive Date: 20111208
  Receipt Date: 20121214
  Transmission Date: 20130627
  Serious: Yes (Hospitalization)
  Sender: FDA-Public Use
  Company Number: DE-ROCHE-1017637

PATIENT
  Age: 49 Year
  Sex: Female
  Weight: 68 kg

DRUGS (3)
  1. CAPECITABINE [Suspect]
     Indication: RECTAL CANCER
     Dosage: on day1-33 w/o weekends plus optional boost, single last dose of 1500 mg prior to event: 12/Aug/2011
     Route: 048
     Dates: start: 20110628
  2. OXALIPLATIN [Suspect]
     Indication: RECTAL CANCER
     Dosage: on day1,8,15,22,29, last dose priro to event: 26-jul-2011
     Route: 042
     Dates: start: 20110628
  3. LISINOPRIL [Concomitant]
     Indication: HYPERTENSION
     Dosage: started since years
     Route: 048

REACTIONS (1)
  - Anastomotic complication [Recovered/Resolved with Sequelae]
